FAERS Safety Report 25134784 (Version 1)
Quarter: 2025Q1

REPORT INFORMATION
  Report Type: Spontaneous
  Country: US (occurrence: None)
  Receive Date: 20250327
  Receipt Date: 20250327
  Transmission Date: 20250409
  Serious: No
  Sender: FDA-CTU
  Company Number: None

PATIENT
  Age: 72 Year
  Sex: Male

DRUGS (2)
  1. LENALIDOMIDE [Suspect]
     Active Substance: LENALIDOMIDE
     Indication: Lymphoproliferative disorder
     Dosage: 20MG QD ORAL ?
     Route: 048
     Dates: start: 20250304
  2. RITUXAN [Suspect]
     Active Substance: RITUXIMAB

REACTIONS (5)
  - Fatigue [None]
  - Chills [None]
  - Abdominal pain lower [None]
  - Retching [None]
  - Body temperature increased [None]

NARRATIVE: CASE EVENT DATE: 20250313
